FAERS Safety Report 16276289 (Version 2)
Quarter: 2019Q2

REPORT INFORMATION
  Report Type: Spontaneous
  Country: US (occurrence: US)
  Receive Date: 20190505
  Receipt Date: 20190522
  Transmission Date: 20190711
  Serious: Yes (Other)
  Sender: FDA-Public Use
  Company Number: US-TORRENT-00008575

PATIENT
  Age: 25 Year
  Sex: Female

DRUGS (7)
  1. AMPICILLIN [Suspect]
     Active Substance: AMPICILLIN
     Indication: ESCHERICHIA INFECTION
     Dosage: UNKNOWN
  2. HALOPERIDOL. [Suspect]
     Active Substance: HALOPERIDOL
     Indication: MAJOR DEPRESSION
     Dosage: UNKNOWN
  3. LORAZEPAM. [Suspect]
     Active Substance: LORAZEPAM
     Indication: ACUTE PSYCHOSIS
     Dosage: UNKNOWN
  4. RISPERIDONE. [Suspect]
     Active Substance: RISPERIDONE
     Indication: ACUTE PSYCHOSIS
     Dosage: UNKNOWN
  5. OLANZAPINE. [Suspect]
     Active Substance: OLANZAPINE
     Indication: PSYCHOTIC DISORDER
     Dosage: 5 MG ONCE DAILY
  6. CEFTRIAXONE. [Suspect]
     Active Substance: CEFTRIAXONE
     Indication: STREPTOCOCCAL INFECTION
     Dosage: UNKNOWN
     Route: 042
  7. AMOXICILLIN. [Suspect]
     Active Substance: AMOXICILLIN
     Indication: STREPTOCOCCAL INFECTION
     Dosage: UNKNOWN

REACTIONS (2)
  - Neuroleptic malignant syndrome [Recovered/Resolved]
  - Exposure during pregnancy [Unknown]
